FAERS Safety Report 7353185-1 (Version None)
Quarter: 2011Q1

REPORT INFORMATION
  Report Type: 
  Country: None (occurrence: None)
  Receive Date: 20110310
  Receipt Date: 20110310
  Transmission Date: 20110831
  Serious: Yes (Other)
  Sender: FDA-Public Use
  Company Number: None

PATIENT
  Age: 19 Month
  Sex: Male
  Weight: 10.6 kg

DRUGS (4)
  1. DIPHENHYDRAMINE HCL [Concomitant]
  2. GAMMAGARD LIQUID [Suspect]
     Indication: OPSOCLONUS MYOCLONUS
     Dosage: 1GRAM/KG MONTHLY IV DRIP
     Route: 041
     Dates: start: 20100901
  3. GAMMAGARD LIQUID [Suspect]
     Indication: ATAXIA
     Dosage: 1GRAM/KG MONTHLY IV DRIP
     Route: 041
     Dates: start: 20100901
  4. ACETAMINOPHEN [Concomitant]

REACTIONS (3)
  - VOMITING [None]
  - LETHARGY [None]
  - HEADACHE [None]
